FAERS Safety Report 8562580 (Version 2)
Quarter: 2012Q4

REPORT INFORMATION
  Report Type: 
  Country: FR (occurrence: FR)
  Receive Date: 20120515
  Receipt Date: 20120920
  Transmission Date: 20130627
  Serious: Yes (Life-Threatening, Hospitalization, Other)
  Sender: FDA-Public Use
  Company Number: PHHY2012FR040263

PATIENT
  Age: 72 Year
  Sex: Male

DRUGS (3)
  1. LEPONEX [Suspect]
     Indication: DEMENTIA
     Dosage: 0.5 DF, UNK
     Dates: start: 20120417, end: 20120419
  2. SERESTA [Suspect]
     Indication: DEMENTIA
     Dosage: 3 DF, daily
     Dates: start: 20120417, end: 20120419
  3. REMINYL [Concomitant]
     Indication: DEMENTIA
     Dosage: 1 DF, daily
     Route: 048
     Dates: end: 20120419

REACTIONS (11)
  - Coma [Recovered/Resolved]
  - Unresponsive to stimuli [Recovered/Resolved]
  - Coma scale abnormal [Recovered/Resolved]
  - Grand mal convulsion [Recovered/Resolved]
  - Convulsion [Recovered/Resolved with Sequelae]
  - Lung disorder [Recovered/Resolved]
  - Agitation [Unknown]
  - Dyspnoea [Unknown]
  - Encephalopathy [Unknown]
  - Blood creatinine increased [Unknown]
  - Tachycardia [Unknown]
